FAERS Safety Report 23769676 (Version 1)
Quarter: 2024Q2

REPORT INFORMATION
  Report Type: Spontaneous
  Country: US (occurrence: None)
  Receive Date: 20240421
  Receipt Date: 20240421
  Transmission Date: 20240715
  Serious: Yes (Hospitalization)
  Sender: FDA-Public Use
  Company Number: None

PATIENT
  Age: 76 Year
  Sex: Male
  Weight: 101 kg

DRUGS (1)
  1. LIRAGLUTIDE [Suspect]
     Active Substance: LIRAGLUTIDE
     Dosage: 1.2MG EVERY DAY SQ?
     Route: 058
     Dates: start: 20190419, end: 20220503

REACTIONS (2)
  - Therapy change [None]
  - Pancreatitis acute [None]

NARRATIVE: CASE EVENT DATE: 20220503
